FAERS Safety Report 9571273 (Version 2)
Quarter: 2013Q4

REPORT INFORMATION
  Report Type: Spontaneous
  Country: US (occurrence: US)
  Receive Date: 20131001
  Receipt Date: 20131112
  Transmission Date: 20140711
  Serious: Yes (Other)
  Sender: FDA-Public Use
  Company Number: US-ASTELLAS-2013US010084

PATIENT
  Sex: Female
  Weight: 104 kg

DRUGS (8)
  1. VESICARE [Suspect]
     Indication: PRODUCT USED FOR UNKNOWN INDICATION
     Dosage: 10 MG, UID/QD
     Route: 048
     Dates: start: 201304
  2. CYMBALTA [Concomitant]
     Indication: PAIN
     Dosage: 60 MG, UID/QD
     Route: 048
  3. CYMBALTA [Concomitant]
     Indication: ANXIETY
  4. KLONOPIN [Concomitant]
     Indication: PAIN
     Dosage: 1 MG, BID
     Route: 048
  5. KLONOPIN [Concomitant]
     Indication: ANXIETY
  6. SIMVASTATIN [Concomitant]
     Indication: BLOOD CHOLESTEROL
     Dosage: 40 MG, UID/QD
     Route: 048
  7. UNSPECIFIED MEDICATION [Concomitant]
     Indication: GASTROOESOPHAGEAL REFLUX DISEASE
     Dosage: 40 MG, UID/QD
     Route: 048
  8. ASPIRIN [Concomitant]
     Indication: ARTHROPATHY
     Dosage: 325 MG, UID/QD
     Route: 048

REACTIONS (1)
  - Fall [Unknown]
